FAERS Safety Report 5335183-2 (Version None)
Quarter: 2007Q2

REPORT INFORMATION
  Report Type: 
  Country: None (occurrence: None)
  Receive Date: 20070525
  Receipt Date: 20070515
  Transmission Date: 20071010
  Serious: Yes (Hospitalization, Other)
  Sender: FDA-Public Use
  Company Number: US-PFIZER INC-2006124767

PATIENT
  Sex: Female
  Weight: 122.9 kg

DRUGS (2)
  1. CELEBREX [Suspect]
     Indication: PAIN
     Route: 048
     Dates: start: 19990401, end: 20001201
  2. VIOXX [Suspect]
     Route: 048

REACTIONS (3)
  - ANXIETY [None]
  - CARDIOVASCULAR DISORDER [None]
  - MYOCARDIAL INFARCTION [None]
